FAERS Safety Report 19885561 (Version 1)
Quarter: 2021Q3

REPORT INFORMATION
  Report Type: Spontaneous
  Country: US (occurrence: US)
  Receive Date: 20210927
  Receipt Date: 20210927
  Transmission Date: 20211014
  Serious: No
  Sender: FDA-Public Use
  Company Number: US-MELINTA THERAPEUTICS, LLC-US-MLNT-21-00035

PATIENT

DRUGS (2)
  1. ORBACTIV [Suspect]
     Active Substance: ORITAVANCIN
     Dosage: NOT PROVIDED.
     Route: 041
  2. ORBACTIV [Suspect]
     Active Substance: ORITAVANCIN
     Indication: PRODUCT USED FOR UNKNOWN INDICATION
     Dosage: NOT PROVIDED.
     Route: 041

REACTIONS (4)
  - Back pain [Unknown]
  - Vomiting [Unknown]
  - Nausea [Unknown]
  - Chills [Unknown]

NARRATIVE: CASE EVENT DATE: 20210316
